FAERS Safety Report 12286016 (Version 2)
Quarter: 2016Q2

REPORT INFORMATION
  Report Type: Spontaneous
  Country: JP (occurrence: JP)
  Receive Date: 20160420
  Receipt Date: 20160524
  Transmission Date: 20160815
  Serious: Yes (Death, Life-Threatening, Other)
  Sender: FDA-Public Use
  Company Number: JP-009507513-1604JPN012791

PATIENT
  Age: 47 Year
  Sex: Male
  Weight: 66 kg

DRUGS (13)
  1. CANCIDAS [Suspect]
     Active Substance: CASPOFUNGIN ACETATE
     Indication: PROPHYLAXIS
     Dosage: 50 MG, DAILY
     Route: 041
     Dates: start: 20160102, end: 20160119
  2. DEPAKENE [Concomitant]
     Active Substance: VALPROIC ACID
     Indication: PROPHYLAXIS
     Dosage: 200 MG, TWICE DAILY, OTHER ROUTE OF ADMINISTRATIONS: VIA TUBE
     Route: 051
     Dates: start: 20160106, end: 20160119
  3. VANCOMYCIN HYDROCHLORIDE. [Concomitant]
     Active Substance: VANCOMYCIN HYDROCHLORIDE
     Indication: STAPHYLOCOCCAL INFECTION
     Dosage: 0.5 G, DAILY
     Route: 051
     Dates: start: 20160101, end: 20160108
  4. FOSPHENYTOIN [Concomitant]
     Active Substance: FOSPHENYTOIN\FOSPHENYTOIN SODIUM
     Indication: PROPHYLAXIS
     Dosage: 525 MG, DAILY
     Route: 051
     Dates: start: 20151231, end: 20160106
  5. CANCIDAS [Suspect]
     Active Substance: CASPOFUNGIN ACETATE
     Indication: PROPHYLAXIS
     Dosage: 70 MG, DAILY
     Route: 041
     Dates: start: 20160101, end: 20160101
  6. FENTANYL. [Concomitant]
     Active Substance: FENTANYL
     Indication: SEDATION
  7. PROPOFOL. [Concomitant]
     Active Substance: PROPOFOL
     Indication: SEDATION
     Dosage: DAILY DOSAGE UNKNOWN
     Route: 051
     Dates: start: 20151229, end: 20160119
  8. SELENICA R [Concomitant]
     Active Substance: VALPROATE SODIUM
     Dosage: 200 MG, TWICE A DAY, VIA TUBE
     Route: 048
     Dates: start: 20151229, end: 20160105
  9. MEROPEN [Concomitant]
     Active Substance: MEROPENEM
     Indication: INFECTION
     Dosage: 1 G, TWICE DAILY
     Route: 051
     Dates: start: 20151230, end: 20160113
  10. ANTHROBIN P [Concomitant]
     Active Substance: ANTITHROMBIN III HUMAN
     Indication: DISSEMINATED INTRAVASCULAR COAGULATION
     Dosage: DAILY DOSAGE UNKNOWN
     Route: 051
     Dates: start: 20151229, end: 20160119
  11. SELENICA R [Concomitant]
     Active Substance: VALPROATE SODIUM
     Indication: PROPHYLAXIS
     Dosage: 200 MG, TWICE A DAY
     Route: 051
     Dates: start: 20151229, end: 20160105
  12. FENTANYL. [Concomitant]
     Active Substance: FENTANYL
     Indication: ANALGESIC THERAPY
     Dosage: DAILY DOSAGE UNKNOWN
     Route: 051
     Dates: start: 20151229, end: 20160119
  13. HYDROCORTONE [Concomitant]
     Active Substance: HYDROCORTISONE
     Indication: ADRENAL INSUFFICIENCY
     Dosage: DIVIDED DOSE FREQUENCY UNKNOWN
     Route: 051
     Dates: start: 20160114, end: 20160119

REACTIONS (2)
  - Septic shock [Not Recovered/Not Resolved]
  - Thermal burn [Fatal]

NARRATIVE: CASE EVENT DATE: 20160109
